FAERS Safety Report 8960772 (Version 2)
Quarter: 2013Q1

REPORT INFORMATION
  Report Type: Spontaneous
  Country: US (occurrence: None)
  Receive Date: 20121115
  Receipt Date: 20121211
  Transmission Date: 20140127
  Serious: Yes (Hospitalization, Other)
  Sender: FDA-Public Use
  Company Number: 12-026

PATIENT
  Age: 46 Year
  Sex: Male

DRUGS (2)
  1. ALLERGENIC EXTRACTS [Suspect]
     Indication: SKIN TEST
     Dosage: MULTIPLE, SEE ATTACHED
     Dates: start: 20120831, end: 20121016
  2. ALLERGENIC EXTRACTS [Suspect]
     Indication: IMMUNE SYSTEM DISORDER
     Dosage: MULTIPLE, SEE ATTACHED
     Dates: start: 20120831, end: 20121016

REACTIONS (10)
  - Urticaria [None]
  - Dyspnoea [None]
  - Throat tightness [None]
  - Anaphylactic reaction [None]
  - Gastrooesophageal reflux disease [None]
  - Eosinophilic oesophagitis [None]
  - Rhinitis allergic [None]
  - Nasal septum deviation [None]
  - Arthralgia [None]
  - Flushing [None]
